FAERS Safety Report 8000049-6 (Version None)
Quarter: 2011Q4

REPORT INFORMATION
  Report Type: 
  Country: None (occurrence: None)
  Receive Date: 20111222
  Receipt Date: 20091105
  Transmission Date: 20120403
  Serious: No
  Sender: FDA-Public Use
  Company Number: 2009BI036155

PATIENT
  Sex: Male

DRUGS (1)
  1. TYSABRI [Suspect]
     Indication: MULTIPLE SCLEROSIS
     Route: 042
     Dates: start: 20070306

REACTIONS (13)
  - THROAT TIGHTNESS [None]
  - ARTHRALGIA [None]
  - WHEEZING [None]
  - PAIN IN EXTREMITY [None]
  - FATIGUE [None]
  - LACRIMATION INCREASED [None]
  - EYE PRURITUS [None]
  - RESPIRATORY TRACT INFECTION [None]
  - URTICARIA [None]
  - CHEST PAIN [None]
  - DIZZINESS [None]
  - CHILLS [None]
  - HEADACHE [None]
